FAERS Safety Report 19086873 (Version 1)
Quarter: 2021Q2

REPORT INFORMATION
  Report Type: Spontaneous
  Country: US (occurrence: US)
  Receive Date: 20210401
  Receipt Date: 20210401
  Transmission Date: 20210717
  Serious: Yes (Hospitalization)
  Sender: FDA-Public Use
  Company Number: None

PATIENT
  Age: 60 Year
  Sex: Female
  Weight: 86 kg

DRUGS (2)
  1. SEMAGLUTIDE (SEMAGLUTIDE 0.5MG/0.375ML INJ,SOLN,PEN,1.5ML) [Suspect]
     Active Substance: SEMAGLUTIDE
     Indication: DIABETES MELLITUS
     Route: 058
     Dates: start: 20201216
  2. ALOGLIPTIN (ALOGLIPTIN 12.5MG TAB) [Suspect]
     Active Substance: ALOGLIPTIN
     Indication: DIABETES MELLITUS
     Route: 048
     Dates: start: 20201204, end: 20201218

REACTIONS (6)
  - Blood glucose increased [None]
  - Lactic acidosis [None]
  - Asthenia [None]
  - Pancreatitis [None]
  - Polyuria [None]
  - Abdominal pain [None]

NARRATIVE: CASE EVENT DATE: 20201217
